FAERS Safety Report 8802105 (Version 2)
Quarter: 2013Q1

REPORT INFORMATION
  Report Type: Spontaneous
  Country: US (occurrence: US)
  Receive Date: 20120921
  Receipt Date: 20130123
  Transmission Date: 20140127
  Serious: Yes (Hospitalization)
  Sender: FDA-Public Use
  Company Number: US-BAYER-2012-098093

PATIENT
  Age: 36 Year
  Sex: Female
  Weight: 85.71 kg

DRUGS (4)
  1. YAZ [Suspect]
  2. YASMIN [Suspect]
  3. OCELLA [Suspect]
  4. MOTRIN [Concomitant]
     Dosage: UNK UNK, PRN

REACTIONS (2)
  - Injury [None]
  - Cerebral infarction [None]
